FAERS Safety Report 11919170 (Version 1)
Quarter: 2016Q1

REPORT INFORMATION
  Report Type: Spontaneous
  Country: US (occurrence: None)
  Receive Date: 20160114
  Receipt Date: 20160114
  Transmission Date: 20160526
  Serious: Yes (Hospitalization)
  Sender: FDA-Public Use
  Company Number: None

PATIENT
  Age: 69 Year
  Sex: Female
  Weight: 86.64 kg

DRUGS (8)
  1. BISOPROLOL [Concomitant]
     Active Substance: BISOPROLOL
  2. OMEPRAZOLE. [Concomitant]
     Active Substance: OMEPRAZOLE
  3. MULTIVITAMINS [Concomitant]
     Active Substance: VITAMINS
  4. POLYETHYLENE GLYCOL 17 G PERRIGO CO [Suspect]
     Active Substance: POLYETHYLENE GLYCOL 3350
     Indication: COLONOSCOPY
     Dosage: MIX 1 PACKET, EVERY 15 MINUTES, TAKEN BY MOUTH
     Dates: start: 20160104, end: 20160104
  5. POLYETHYLENE GLYCOL 17 G PERRIGO CO [Suspect]
     Active Substance: POLYETHYLENE GLYCOL 3350
     Indication: ENDOSCOPY
     Dosage: MIX 1 PACKET, EVERY 15 MINUTES, TAKEN BY MOUTH
     Dates: start: 20160104, end: 20160104
  6. CARDIZEM [Concomitant]
     Active Substance: DILTIAZEM HYDROCHLORIDE
  7. TYLENOL [Concomitant]
     Active Substance: ACETAMINOPHEN
  8. CLONIDINE. [Concomitant]
     Active Substance: CLONIDINE

REACTIONS (7)
  - Dizziness [None]
  - Hypoaesthesia [None]
  - Dysphagia [None]
  - Malaise [None]
  - Asthenia [None]
  - Hypoaesthesia oral [None]
  - Feeling cold [None]

NARRATIVE: CASE EVENT DATE: 20160104
